FAERS Safety Report 19968029 (Version 1)
Quarter: 2021Q4

REPORT INFORMATION
  Report Type: Spontaneous
  Country: US (occurrence: US)
  Receive Date: 20211015
  Receipt Date: 20211015
  Transmission Date: 20220303
  Serious: Yes (Hospitalization)
  Sender: FDA-Public Use
  Company Number: None

PATIENT
  Sex: Male

DRUGS (2)
  1. IMATINIB MESYLATE [Suspect]
     Active Substance: IMATINIB MESYLATE
     Indication: Illness
     Route: 048
     Dates: start: 20210828
  2. HYDROXYURIA [Concomitant]

REACTIONS (3)
  - Full blood count increased [None]
  - Supraventricular tachycardia [None]
  - Arrhythmia [None]
